FAERS Safety Report 9607593 (Version 2)
Quarter: 2013Q4

REPORT INFORMATION
  Report Type: Spontaneous
  Country: US (occurrence: US)
  Receive Date: 20131009
  Receipt Date: 20131014
  Transmission Date: 20140711
  Serious: No
  Sender: FDA-Public Use
  Company Number: US-VERTEX PHARMACEUTICALS INC-2013-010220

PATIENT
  Age: 55 Year
  Sex: Female
  Weight: 74.38 kg

DRUGS (3)
  1. INCIVEK [Suspect]
     Indication: HEPATITIS C
     Dosage: 750 MG, TID
     Dates: start: 20131004
  2. RIBAVIRIN [Suspect]
     Indication: HEPATITIS C
     Dosage: 1 DF, BID
     Dates: start: 20131004
  3. PEGASYS [Suspect]
     Indication: HEPATITIS C
     Dosage: 180 ?G, QW
     Route: 058
     Dates: start: 20131004

REACTIONS (1)
  - Vomiting [Recovered/Resolved]
